FAERS Safety Report 6092307-X (Version None)
Quarter: 2009Q1

REPORT INFORMATION
  Report Type: 
  Country: None (occurrence: None)
  Receive Date: 20090225
  Receipt Date: 20090216
  Transmission Date: 20090719
  Serious: Yes (Hospitalization)
  Sender: FDA-Public Use
  Company Number: B0560467A

PATIENT
  Age: 31 Year
  Sex: Female
  Weight: 85.7 kg

DRUGS (2)
  1. NIQUITIN CQ CLEAR 21MG [Suspect]
     Indication: SMOKING CESSATION THERAPY
     Route: 062
     Dates: start: 20090205, end: 20090205
  2. CLARITHROMYCIN [Suspect]
     Indication: LOWER RESPIRATORY TRACT INFECTION
     Dosage: 250MG TWICE PER DAY
     Route: 065
     Dates: start: 20090204

REACTIONS (8)
  - BLOOD PRESSURE [None]
  - CHEST PAIN [None]
  - HEART RATE INCREASED [None]
  - LOWER RESPIRATORY TRACT INFECTION [None]
  - MYOCARDIAL INFARCTION [None]
  - PAIN IN EXTREMITY [None]
  - PAIN IN JAW [None]
  - TACHYCARDIA [None]
